FAERS Safety Report 4390103-2 (Version None)
Quarter: 2004Q3

REPORT INFORMATION
  Report Type: 
  Country: None (occurrence: None)
  Receive Date: 20040706
  Receipt Date: 20040623
  Transmission Date: 20050211
  Serious: Yes (Hospitalization)
  Sender: FDA-Public Use
  Company Number: US-MERCK-0406USA02222

PATIENT
  Sex: Female

DRUGS (1)
  1. ZOCOR [Suspect]
     Route: 048

REACTIONS (2)
  - ANGINA PECTORIS [None]
  - LOW DENSITY LIPOPROTEIN INCREASED [None]
